FAERS Safety Report 12515450 (Version 3)
Quarter: 2019Q4

REPORT INFORMATION
  Report Type: Spontaneous
  Country: US (occurrence: US)
  Receive Date: 20160630
  Receipt Date: 20191227
  Transmission Date: 20200122
  Serious: Yes (Death, Hospitalization)
  Sender: FDA-Public Use
  Company Number: US-JNJFOC-20160502836

PATIENT
  Age: 58 Year
  Sex: Male

DRUGS (1)
  1. XARELTO [Suspect]
     Active Substance: RIVAROXABAN
     Indication: DEEP VEIN THROMBOSIS
     Dosage: DOSE VARYING FROM 15 MG, 20 MG
     Route: 048
     Dates: start: 20140424, end: 20140516

REACTIONS (2)
  - Haematemesis [Not Recovered/Not Resolved]
  - Oesophageal adenocarcinoma [Fatal]

NARRATIVE: CASE EVENT DATE: 2014
